FAERS Safety Report 6257898-4 (Version None)
Quarter: 2009Q3

REPORT INFORMATION
  Report Type: 
  Country: None (occurrence: None)
  Receive Date: 20090707
  Receipt Date: 20090626
  Transmission Date: 20100115
  Serious: Yes (Hospitalization)
  Sender: FDA-Public Use
  Company Number: US-PFIZER INC-2009224340

PATIENT
  Sex: Male
  Weight: 119 kg

DRUGS (25)
  1. NAPROXEN [Suspect]
     Dosage: UNK
     Route: 048
     Dates: start: 20080827, end: 20090505
  2. BLINDED *NO SUBJECT DRUG [Suspect]
     Dosage: UNK
     Route: 048
     Dates: start: 20080827, end: 20090505
  3. BLINDED *PLACEBO [Suspect]
     Dosage: UNK
     Route: 048
     Dates: start: 20080827, end: 20090505
  4. BLINDED CELECOXIB [Suspect]
     Dosage: UNK
     Route: 048
     Dates: start: 20080827, end: 20090505
  5. IBUPROFEN [Suspect]
     Dosage: UNK
     Route: 048
     Dates: start: 20080827, end: 20090505
  6. NAPROXEN [Suspect]
     Dosage: UNK
     Route: 048
     Dates: start: 20080827, end: 20090505
  7. NEXIUM [Concomitant]
     Dosage: 40 MG, 1X/DAY
     Route: 048
     Dates: start: 20070208
  8. FELODIPINE [Concomitant]
     Dosage: UNK
     Route: 048
     Dates: start: 19960101
  9. VESICARE [Concomitant]
     Dosage: UNK
     Route: 048
     Dates: start: 20060216
  10. CLARINEX [Concomitant]
     Dosage: UNK
     Route: 048
     Dates: start: 20001122
  11. ZOCOR [Concomitant]
     Dosage: UNK
     Route: 048
     Dates: start: 20040430
  12. PROZAC [Concomitant]
     Dosage: UNK
     Route: 048
     Dates: start: 20060130
  13. GLUCOPHAGE [Concomitant]
     Dosage: UNK
     Route: 048
     Dates: start: 20060805
  14. GLIPIZIDE [Concomitant]
     Dosage: UNK
     Route: 048
     Dates: start: 20051017
  15. ACTOS [Concomitant]
     Dosage: UNK
     Route: 048
     Dates: start: 20080324
  16. KLONOPIN [Concomitant]
     Dosage: UNK
     Route: 048
     Dates: start: 20060727
  17. FLAXSEED OIL [Concomitant]
     Dosage: UNK
     Route: 048
     Dates: start: 19960101
  18. ESTER-C [Concomitant]
     Dosage: UNK
     Route: 048
     Dates: start: 19960101
  19. LOVAZA [Concomitant]
     Dosage: UNK
     Route: 048
     Dates: start: 19960101
  20. VITAMIN E [Concomitant]
     Dosage: UNK
     Route: 048
     Dates: start: 19960101
  21. MAGNESIUM [Concomitant]
     Dosage: UNK
     Route: 048
     Dates: start: 19960101
  22. CORAL CALCIUM [Concomitant]
     Dosage: UNK
     Route: 048
     Dates: start: 19960101
  23. GENERAL NUTRIENTS/MINERALS/VITAMINS [Concomitant]
     Dosage: UNK
     Route: 048
     Dates: start: 20090404
  24. CO-Q-10 [Concomitant]
     Dosage: UNK
     Route: 048
     Dates: start: 20090404
  25. ASPIRIN [Concomitant]
     Dosage: UNK
     Route: 048
     Dates: start: 19860101

REACTIONS (9)
  - AORTIC VALVE DISEASE [None]
  - ATRIAL FIBRILLATION [None]
  - BUNDLE BRANCH BLOCK RIGHT [None]
  - CHEST DISCOMFORT [None]
  - ECHOCARDIOGRAM ABNORMAL [None]
  - EJECTION FRACTION DECREASED [None]
  - ELECTROCARDIOGRAM ST SEGMENT ABNORMAL [None]
  - LEFT VENTRICULAR HYPERTROPHY [None]
  - RIGHT ATRIAL DILATATION [None]
